FAERS Safety Report 15795768 (Version 1)
Quarter: 2019Q1

REPORT INFORMATION
  Report Type: Spontaneous
  Country: ES (occurrence: ES)
  Receive Date: 20190107
  Receipt Date: 20190107
  Transmission Date: 20190417
  Serious: Yes (Hospitalization, Other)
  Sender: FDA-Public Use
  Company Number: ES-MYLANLABS-2018M1097669

PATIENT
  Age: 3 Decade
  Sex: Female

DRUGS (3)
  1. MESALAZINE [Suspect]
     Active Substance: MESALAMINE
     Indication: COLITIS ULCERATIVE
     Dosage: PULSE THERAPY
     Route: 065
  2. AZATHIOPRINE. [Suspect]
     Active Substance: AZATHIOPRINE
     Indication: COLITIS ULCERATIVE
     Route: 065
  3. IMMUNE GLOBULIN NOS [Suspect]
     Active Substance: IMMUNE GLOBULIN NOS
     Indication: IMMUNODEFICIENCY COMMON VARIABLE
     Dosage: UNK
     Route: 042

REACTIONS (14)
  - Klebsiella infection [Unknown]
  - Streptococcal infection [Unknown]
  - Gastroenteritis norovirus [Recovered/Resolved]
  - Oral candidiasis [Recovering/Resolving]
  - Maternal exposure during pregnancy [Recovered/Resolved]
  - Respiratory tract infection [Unknown]
  - Campylobacter infection [Recovered/Resolved]
  - Condition aggravated [Recovered/Resolved]
  - Weight decreased [Recovering/Resolving]
  - Normal newborn [Recovered/Resolved]
  - Vulvovaginal candidiasis [Recovering/Resolving]
  - Autoimmune enteropathy [Recovered/Resolved]
  - Skin papilloma [Recovered/Resolved]
  - Onychomycosis [Recovered/Resolved]

NARRATIVE: CASE EVENT DATE: 2017
